FAERS Safety Report 14015142 (Version 1)
Quarter: 2017Q3

REPORT INFORMATION
  Report Type: Spontaneous
  Country: JP (occurrence: JP)
  Receive Date: 20170927
  Receipt Date: 20170927
  Transmission Date: 20171128
  Serious: Yes (Hospitalization, Other)
  Sender: FDA-Public Use
  Company Number: PHJP2017JP028966

PATIENT
  Sex: Female

DRUGS (1)
  1. COSENTYX [Suspect]
     Active Substance: SECUKINUMAB
     Indication: PRODUCT USED FOR UNKNOWN INDICATION
     Dosage: UNK
     Route: 058
     Dates: start: 201702

REACTIONS (9)
  - Colitis [Unknown]
  - Blood pressure decreased [Unknown]
  - Hyperthermia [Unknown]
  - Muscular weakness [Unknown]
  - Alopecia [Not Recovered/Not Resolved]
  - Depressed level of consciousness [Unknown]
  - Arthropathy [Unknown]
  - Inflammation [Unknown]
  - Diarrhoea [Unknown]

NARRATIVE: CASE EVENT DATE: 201703
